FAERS Safety Report 6353991-6 (Version None)
Quarter: 2009Q3

REPORT INFORMATION
  Report Type: 
  Country: None (occurrence: None)
  Receive Date: 20090914
  Receipt Date: 20090901
  Transmission Date: 20100115
  Serious: Yes (Hospitalization, Other)
  Sender: FDA-Public Use
  Company Number: US-ELI_LILLY_AND_COMPANY-US200908002443

PATIENT
  Sex: Female

DRUGS (15)
  1. CYMBALTA [Suspect]
     Indication: FIBROMYALGIA
     Dosage: 120 MG, DAILY (1/D)
     Dates: start: 20090201
  2. CYMBALTA [Suspect]
     Dosage: 1 D/F, UNK
     Dates: start: 20090101, end: 20090825
  3. TOLTERODINE TARTRATE [Concomitant]
     Dosage: 4 MG, DAILY (1/D)
  4. TRAZODONE [Concomitant]
     Dosage: 50 MG, DAILY (1/D)
  5. PREGABALIN [Concomitant]
     Dosage: 75 MG, 2/D
  6. PROPRANOLOL [Concomitant]
     Dosage: 25 MG, DAILY (1/D)
     Dates: end: 20090825
  7. PREDNISONE [Concomitant]
     Dosage: 7.5 MG, DAILY (1/D)
  8. LEVOTHYROXINE SODIUM [Concomitant]
     Dosage: 75 UG, DAILY (1/D)
  9. INSULIN [Concomitant]
  10. FENTANYL [Concomitant]
     Dosage: 50 UG, UNK
  11. ARIPIPRAZOLE [Concomitant]
     Dosage: 20 MG, DAILY (1/D)
  12. LAMICTAL [Concomitant]
     Dosage: 25 MG, 2/D
  13. HEPARIN [Concomitant]
  14. ESTRADIOL [Concomitant]
     Dosage: 1 D/F, DAILY (1/D)
     Dates: end: 20090825
  15. CALCIUM [Concomitant]

REACTIONS (21)
  - ALANINE AMINOTRANSFERASE INCREASED [None]
  - APPETITE DISORDER [None]
  - ASPARTATE AMINOTRANSFERASE INCREASED [None]
  - BACTERAEMIA [None]
  - BLOOD BILIRUBIN INCREASED [None]
  - CHOLELITHIASIS [None]
  - COLITIS [None]
  - CYTOMEGALOVIRUS VIRAEMIA [None]
  - ELECTROLYTE IMBALANCE [None]
  - GLUCOSE URINE [None]
  - HAEMORRHAGE [None]
  - HYPERTENSION [None]
  - IDIOPATHIC THROMBOCYTOPENIC PURPURA [None]
  - MALNUTRITION [None]
  - METABOLIC ENCEPHALOPATHY [None]
  - MIGRAINE [None]
  - PANCYTOPENIA [None]
  - RASH [None]
  - RENAL DISORDER [None]
  - SEPSIS [None]
  - URINE KETONE BODY PRESENT [None]
